FAERS Safety Report 10838834 (Version 2)
Quarter: 2019Q3

REPORT INFORMATION
  Report Type: Spontaneous
  Country: BG (occurrence: BG)
  Receive Date: 20150219
  Receipt Date: 20190816
  Transmission Date: 20191004
  Serious: Yes (Life-Threatening, Hospitalization, Other)
  Sender: FDA-Public Use
  Company Number: PHHY2015BG016963

PATIENT
  Age: 10 Year
  Sex: Female

DRUGS (6)
  1. XYZAL [Concomitant]
     Active Substance: LEVOCETIRIZINE DIHYDROCHLORIDE
     Indication: HYPERSENSITIVITY
  2. DIMEX [Concomitant]
     Active Substance: AMMONIUM CHLORIDE\DIPHENHYDRAMINE HYDROCHLORIDE
     Indication: COUGH
     Dosage: 125 ML (1 BOTTLE FOR 3 DAYS), UNK
     Route: 048
  3. XYZAL [Concomitant]
     Active Substance: LEVOCETIRIZINE DIHYDROCHLORIDE
     Indication: PRODUCT USED FOR UNKNOWN INDICATION
     Dosage: 1 DF, QD
     Route: 048
  4. VENTOLIN [Suspect]
     Active Substance: ALBUTEROL SULFATE
     Indication: RESPIRATORY TRACT INFECTION
     Dosage: 1 DF, QD
     Route: 048
  5. POTASSIUM GLUCONATE [Concomitant]
     Active Substance: POTASSIUM GLUCONATE
     Indication: HYPERSENSITIVITY
     Route: 065
  6. OMEPRAZOLE. [Suspect]
     Active Substance: OMEPRAZOLE
     Indication: PRODUCT USED FOR UNKNOWN INDICATION
     Route: 065

REACTIONS (22)
  - Epilepsy [Recovered/Resolved]
  - Nodal rhythm [Recovered/Resolved]
  - Foaming at mouth [Unknown]
  - Cyanosis [Unknown]
  - Apnoea [Recovered/Resolved]
  - Electrocardiogram QT prolonged [Recovered/Resolved]
  - Drug interaction [Recovered/Resolved]
  - Malaise [Unknown]
  - Respiratory arrest [Recovered/Resolved]
  - Atrioventricular block [Recovered/Resolved]
  - Irregular breathing [Recovered/Resolved]
  - Heart rate increased [Recovered/Resolved]
  - Pallor [Unknown]
  - Abdominal pain upper [Unknown]
  - Respiratory rate increased [Recovered/Resolved]
  - Electrocardiogram QT prolonged [Recovered/Resolved]
  - Arrhythmia [Recovered/Resolved]
  - Breath sounds abnormal [Recovered/Resolved]
  - Hypopnoea [Recovered/Resolved]
  - Palpitations [Recovered/Resolved]
  - Peripheral coldness [Unknown]
  - Condition aggravated [Unknown]

NARRATIVE: CASE EVENT DATE: 20120115
